FAERS Safety Report 4925428-2 (Version None)
Quarter: 2006Q1

REPORT INFORMATION
  Report Type: 
  Country: None (occurrence: None)
  Receive Date: 20060228
  Receipt Date: 20050217
  Transmission Date: 20060701
  Serious: No
  Sender: FDA-Public Use
  Company Number: US-GLAXOSMITHKLINE-A0546040A

PATIENT
  Age: 48 Year
  Sex: Female

DRUGS (6)
  1. LAMICTAL [Suspect]
     Indication: BIPOLAR DISORDER
     Route: 048
  2. GEODON [Concomitant]
     Dosage: 100MG PER DAY
     Route: 048
  3. KLONOPIN [Concomitant]
     Dosage: 1MG AT NIGHT
     Route: 048
  4. WELLBUTRIN XL [Concomitant]
     Dosage: 450MG IN THE MORNING
     Route: 048
  5. LAMICTAL [Concomitant]
     Dosage: 200MG IN THE MORNING
     Route: 048
  6. LITHOBID [Concomitant]
     Dosage: 300MG PER DAY
     Route: 048

REACTIONS (1)
  - PARAESTHESIA [None]
